FAERS Safety Report 24263984 (Version 1)
Quarter: 2024Q3

REPORT INFORMATION
  Report Type: Spontaneous
  Country: US (occurrence: US)
  Receive Date: 20240829
  Receipt Date: 20240829
  Transmission Date: 20241016
  Serious: No
  Sender: BAYER
  Company Number: US-BAYER-2024A122816

PATIENT
  Age: 80 Year
  Sex: Male

DRUGS (1)
  1. CIPRO [Suspect]
     Active Substance: CIPROFLOXACIN HYDROCHLORIDE
     Indication: Bacterial infection
     Dosage: UNK

REACTIONS (4)
  - Diarrhoea [None]
  - Flatulence [None]
  - Joint swelling [None]
  - Peripheral swelling [None]
